FAERS Safety Report 16038015 (Version 1)
Quarter: 2019Q1

REPORT INFORMATION
  Report Type: Spontaneous
  Country: US (occurrence: US)
  Receive Date: 20190305
  Receipt Date: 20190305
  Transmission Date: 20190418
  Serious: Yes (Other)
  Sender: FDA-Public Use
  Company Number: US-AKORN PHARMACEUTICALS-2019AKN00283

PATIENT
  Sex: Male
  Weight: 65.76 kg

DRUGS (2)
  1. MYORISAN [Suspect]
     Active Substance: ISOTRETINOIN
     Indication: ACNE
     Dosage: 30 MG, 2X/DAY
     Route: 048
     Dates: start: 20181213, end: 20190120
  2. FLUOCINONIDE. [Concomitant]
     Active Substance: FLUOCINONIDE
     Route: 061

REACTIONS (2)
  - Mood altered [Recovered/Resolved]
  - Depressed mood [Recovered/Resolved]
